FAERS Safety Report 5118019-4 (Version None)
Quarter: 2006Q3

REPORT INFORMATION
  Report Type: 
  Country: None (occurrence: None)
  Receive Date: 20060929
  Receipt Date: 20060920
  Transmission Date: 20061208
  Serious: Yes (Other)
  Sender: FDA-Public Use
  Company Number: JP-BRISTOL-MYERS SQUIBB COMPANY-13518444

PATIENT
  Age: 51 Year
  Sex: Male

DRUGS (3)
  1. FUNGIZONE [Suspect]
     Indication: FUSARIUM INFECTION
  2. DAUNOMYCIN [Concomitant]
     Indication: ACUTE MYELOID LEUKAEMIA
     Dates: start: 20051004
  3. CYTARABINE [Concomitant]
     Indication: ACUTE MYELOID LEUKAEMIA
     Dates: start: 20051004

REACTIONS (2)
  - HYPOKALAEMIA [None]
  - VENTRICULAR TACHYCARDIA [None]
